FAERS Safety Report 6761857-2 (Version None)
Quarter: 2010Q2

REPORT INFORMATION
  Report Type: 
  Country: None (occurrence: None)
  Receive Date: 20100609
  Receipt Date: 20100528
  Transmission Date: 20101027
  Serious: Yes (Other)
  Sender: FDA-Public Use
  Company Number: PHHO2010RU08112

PATIENT
  Sex: Female
  Weight: 40 kg

DRUGS (1)
  1. ICL670A ICL+DISTAB [Suspect]
     Indication: IRON OVERLOAD
     Dosage: 1250 MG, DAILY
     Route: 048
     Dates: start: 20100327

REACTIONS (2)
  - DIABETES MELLITUS [None]
  - DISEASE PROGRESSION [None]
